FAERS Safety Report 25654879 (Version 1)
Quarter: 2025Q3

REPORT INFORMATION
  Report Type: Spontaneous
  Country: US (occurrence: US)
  Receive Date: 20250807
  Receipt Date: 20250807
  Transmission Date: 20251021
  Serious: No
  Sender: SANOFI AVENTIS
  Company Number: US-SA-2025SA228927

PATIENT
  Age: 61 Year
  Sex: Female

DRUGS (1)
  1. DUPIXENT [Suspect]
     Active Substance: DUPILUMAB
     Indication: Asthma
     Route: 058

REACTIONS (10)
  - Nausea [Unknown]
  - Chills [Unknown]
  - Sleep disorder [Unknown]
  - Diarrhoea [Unknown]
  - Influenza like illness [Unknown]
  - Headache [Unknown]
  - Decreased appetite [Unknown]
  - Pain [Unknown]
  - Throat irritation [Unknown]
  - Chromaturia [Unknown]
